FAERS Safety Report 4949817-5 (Version None)
Quarter: 2006Q1

REPORT INFORMATION
  Report Type: 
  Country: None (occurrence: None)
  Receive Date: 20060321
  Receipt Date: 20050919
  Transmission Date: 20060701
  Serious: Yes (Other)
  Sender: FDA-Public Use
  Company Number: US-MERCK-0509USA02943

PATIENT
  Sex: Male

DRUGS (1)
  1. VIOXX [Suspect]
     Route: 048

REACTIONS (6)
  - BLINDNESS [None]
  - BLINDNESS UNILATERAL [None]
  - EMOTIONAL DISTRESS [None]
  - HYPERTENSION [None]
  - RETINAL ARTERY OCCLUSION [None]
  - VASCULAR OCCLUSION [None]
